FAERS Safety Report 5839242-7 (Version None)
Quarter: 2008Q3

REPORT INFORMATION
  Report Type: 
  Country: None (occurrence: None)
  Receive Date: 20080808
  Receipt Date: 20080728
  Transmission Date: 20090109
  Serious: Yes (Other)
  Sender: FDA-Public Use
  Company Number: CA-PFIZER INC-2008063086

PATIENT
  Sex: Male

DRUGS (12)
  1. PREDNISONE [Suspect]
     Indication: KAPOSI'S SARCOMA
     Route: 048
  2. PREDNISONE [Suspect]
     Indication: CASTLEMAN'S DISEASE
  3. DOXORUBICIN HCL [Suspect]
     Indication: KAPOSI'S SARCOMA
     Dates: start: 20031101
  4. DOXORUBICIN HCL [Suspect]
     Indication: CASTLEMAN'S DISEASE
  5. CYCLOPHOSPHAMIDE [Suspect]
     Indication: KAPOSI'S SARCOMA
  6. CYCLOPHOSPHAMIDE [Suspect]
     Indication: CASTLEMAN'S DISEASE
  7. VINCRISTINE [Suspect]
     Indication: KAPOSI'S SARCOMA
  8. VINCRISTINE [Suspect]
     Indication: CASTLEMAN'S DISEASE
  9. DOXORUBICIN HCL [Suspect]
     Indication: KAPOSI'S SARCOMA
  10. DOXORUBICIN HCL [Suspect]
     Indication: CASTLEMAN'S DISEASE
  11. RITUXAN [Suspect]
     Indication: KAPOSI'S SARCOMA
  12. RITUXAN [Suspect]
     Indication: CASTLEMAN'S DISEASE

REACTIONS (1)
  - FEBRILE NEUTROPENIA [None]
